FAERS Safety Report 8456154-3 (Version None)
Quarter: 2012Q2

REPORT INFORMATION
  Report Type: 
  Country: None (occurrence: None)
  Receive Date: 20120621
  Receipt Date: 20120619
  Transmission Date: 20120825
  Serious: Yes (Other)
  Sender: FDA-Public Use
  Company Number: PHHY2012CA052804

PATIENT
  Age: 66 Year
  Sex: Female

DRUGS (2)
  1. VALSARTAN  AND HYDROCHLOROTHIAZIDE [Suspect]
     Indication: HYPERTENSION
     Dosage: 1 DF, QD
     Route: 048
  2. ACTONEL [Concomitant]

REACTIONS (2)
  - HYPOTENSION [None]
  - BLOOD PRESSURE INADEQUATELY CONTROLLED [None]
